FAERS Safety Report 6717579-7 (Version None)
Quarter: 2010Q2

REPORT INFORMATION
  Report Type: 
  Country: None (occurrence: None)
  Receive Date: 20100507
  Receipt Date: 20100507
  Transmission Date: 20101027
  Serious: Yes (Hospitalization)
  Sender: FDA-Public Use
  Company Number: None

PATIENT
  Sex: Female
  Weight: 122.4712 kg

DRUGS (11)
  1. AMBRISENTAN 5MG GILEAD [Suspect]
     Indication: PULMONARY HYPERTENSION
     Dosage: 5MG ONCE DAILY PO
     Route: 048
     Dates: start: 20100406, end: 20100421
  2. CLONIDINE [Concomitant]
  3. ATENOLOL [Concomitant]
  4. SILDENAFIL [Concomitant]
  5. DILTIAZEM HCL [Concomitant]
  6. LORAZEPAM [Concomitant]
  7. PAROXETINE HCL [Concomitant]
  8. FUROSEMIDE [Concomitant]
  9. POTASSIUM CHLORIDE [Concomitant]
  10. HYDROCHLOROTHIAZIDE [Concomitant]
  11. WARFARIN SODIUM [Concomitant]

REACTIONS (8)
  - CARDIAC FAILURE CONGESTIVE [None]
  - DYSPNOEA [None]
  - FLUID RETENTION [None]
  - JOINT SWELLING [None]
  - NASAL CONGESTION [None]
  - OEDEMA PERIPHERAL [None]
  - WEIGHT INCREASED [None]
  - WHEEZING [None]
